FAERS Safety Report 6778743-4 (Version None)
Quarter: 2010Q2

REPORT INFORMATION
  Report Type: 
  Country: None (occurrence: None)
  Receive Date: 20100618
  Receipt Date: 20100609
  Transmission Date: 20101027
  Serious: Yes (Hospitalization)
  Sender: FDA-Public Use
  Company Number: NL-TEVA-237369ISR

PATIENT
  Sex: Male
  Weight: 94 kg

DRUGS (3)
  1. PREDNISOLONE [Suspect]
     Indication: RHEUMATOID ARTHRITIS
     Dates: start: 20080401
  2. SULFASALAZINE [Concomitant]
     Dates: start: 20080401, end: 20081201
  3. ORAL ANTIDIABETIC [Concomitant]
     Dates: start: 20080401, end: 20081201

REACTIONS (1)
  - PULMONARY EMBOLISM [None]
